FAERS Safety Report 17071834 (Version 3)
Quarter: 2020Q1

REPORT INFORMATION
  Report Type: Report from Study
  Country: US (occurrence: US)
  Receive Date: 20191125
  Receipt Date: 20200225
  Transmission Date: 20200409
  Serious: Yes (Hospitalization)
  Sender: FDA-Public Use
  Company Number: US-UCBSA-2019023308

PATIENT
  Sex: Female
  Weight: 89 kg

DRUGS (4)
  1. VIMPAT [Suspect]
     Active Substance: LACOSAMIDE
     Indication: SEIZURE
  2. LEVETIRACETAM. [Suspect]
     Active Substance: LEVETIRACETAM
     Indication: SEIZURE
  3. VIMPAT [Suspect]
     Active Substance: LACOSAMIDE
     Indication: EPILEPSY
     Dosage: 200 MILLIGRAM, 2X/DAY (BID)
     Route: 048
     Dates: start: 2006
  4. LEVETIRACETAM. [Suspect]
     Active Substance: LEVETIRACETAM
     Indication: PARTIAL SEIZURES
     Dosage: 750 MG 4 TABLETS DAILY (3000 MG IN THE MORNING)
     Route: 048
     Dates: start: 2006

REACTIONS (5)
  - Product dose omission [Unknown]
  - Intentional product misuse [Unknown]
  - Seizure [Recovered/Resolved]
  - Depression [Not Recovered/Not Resolved]
  - Suicide attempt [Unknown]

NARRATIVE: CASE EVENT DATE: 2006
